FAERS Safety Report 7440128-5 (Version None)
Quarter: 2011Q2

REPORT INFORMATION
  Report Type: 
  Country: None (occurrence: None)
  Receive Date: 20110427
  Receipt Date: 20110414
  Transmission Date: 20111010
  Serious: Yes (Hospitalization)
  Sender: FDA-Public Use
  Company Number: JP-JNJFOC-20110312641

PATIENT
  Sex: Male
  Weight: 92 kg

DRUGS (10)
  1. TIENAM [Concomitant]
  2. CHINESE MEDICATION [Concomitant]
  3. CRAVIT [Concomitant]
     Route: 048
  4. MUCODYNE [Concomitant]
     Route: 048
  5. REMICADE [Suspect]
     Indication: RHEUMATOID ARTHRITIS
     Route: 042
  6. CALONAL [Concomitant]
     Dosage: 6PAC DAILY
     Route: 048
  7. CLARITH [Concomitant]
     Route: 048
  8. METHOTREXATE [Suspect]
     Indication: RHEUMATOID ARTHRITIS
     Route: 048
  9. PERIACTIN [Concomitant]
     Route: 048
  10. REMICADE [Suspect]
     Route: 042

REACTIONS (10)
  - PNEUMONIA [None]
  - HAEMOPHILUS TEST POSITIVE [None]
  - CHILLS [None]
  - GENERAL PHYSICAL HEALTH DETERIORATION [None]
  - PYREXIA [None]
  - STREPTOCOCCUS TEST POSITIVE [None]
  - OXYGEN SATURATION DECREASED [None]
  - MICROCOCCUS TEST POSITIVE [None]
  - DYSPNOEA [None]
  - NASOPHARYNGITIS [None]
